FAERS Safety Report 9726775 (Version 1)
Quarter: 2013Q4

REPORT INFORMATION
  Report Type: Spontaneous
  Country: CL (occurrence: CL)
  Receive Date: 20131203
  Receipt Date: 20131203
  Transmission Date: 20140711
  Serious: Yes (Other)
  Sender: FDA-Public Use
  Company Number: PHHY2013CL139189

PATIENT
  Age: 35 Year
  Sex: Male

DRUGS (3)
  1. FLOTAC [Suspect]
     Indication: INFLAMMATION
     Dosage: 1 DF, UNK
     Route: 048
     Dates: start: 20131124, end: 20131124
  2. BIPROFENID [Concomitant]
     Indication: INFLAMMATION
     Dosage: 150 MG, UNK
     Route: 048
     Dates: start: 20131124, end: 20131124
  3. ZOMEL [Concomitant]
     Indication: GASTROOESOPHAGEAL REFLUX DISEASE
     Dosage: 40 MG, QD
     Route: 048

REACTIONS (5)
  - Tachycardia [Recovered/Resolved]
  - Dyspnoea [Recovered/Resolved]
  - Eyelid oedema [Recovered/Resolved]
  - Pruritus [Recovered/Resolved]
  - Lip oedema [Recovered/Resolved]
